FAERS Safety Report 15159131 (Version 2)
Quarter: 2018Q4

REPORT INFORMATION
  Report Type: Spontaneous
  Country: CO (occurrence: CO)
  Receive Date: 20180718
  Receipt Date: 20181226
  Transmission Date: 20190204
  Serious: Yes (Death, Hospitalization)
  Sender: FDA-Public Use
  Company Number: CO-CELGENEUS-COL-20171008790

PATIENT
  Age: 81 Year
  Sex: Female

DRUGS (5)
  1. FLUCONAZOLE. [Concomitant]
     Active Substance: FLUCONAZOLE
     Indication: PRODUCT USED FOR UNKNOWN INDICATION
     Route: 065
  2. THYROXINE [Concomitant]
     Active Substance: LEVOTHYROXINE
     Indication: PRODUCT USED FOR UNKNOWN INDICATION
     Route: 065
  3. ACICLOVIR [Concomitant]
     Active Substance: ACYCLOVIR
     Indication: PRODUCT USED FOR UNKNOWN INDICATION
     Route: 065
  4. VIDAZA [Suspect]
     Active Substance: AZACITIDINE
     Indication: MYELODYSPLASTIC SYNDROME
     Dosage: 100 MILLIGRAM
     Route: 041
     Dates: start: 20160901, end: 20180422
  5. ERYTHROPOIETIN [Concomitant]
     Active Substance: ERYTHROPOIETIN
     Indication: PRODUCT USED FOR UNKNOWN INDICATION
     Route: 065

REACTIONS (9)
  - Thrombocytopenia [Recovered/Resolved]
  - Anaemia [Not Recovered/Not Resolved]
  - Epistaxis [Not Recovered/Not Resolved]
  - Anaemia [Recovered/Resolved]
  - Thrombocytopenia [Not Recovered/Not Resolved]
  - Anaemia [Recovered/Resolved]
  - Constipation [Unknown]
  - Thrombocytopenia [Recovered/Resolved]
  - Death [Fatal]

NARRATIVE: CASE EVENT DATE: 20171016
